FAERS Safety Report 7322445-2 (Version None)
Quarter: 2011Q1

REPORT INFORMATION
  Report Type: 
  Country: None (occurrence: None)
  Receive Date: 20110301
  Receipt Date: 20110223
  Transmission Date: 20110831
  Serious: Yes (Other)
  Sender: FDA-Public Use
  Company Number: US-RANBAXY-2010US-38018

PATIENT

DRUGS (2)
  1. ACCUTANE [Suspect]
     Dosage: UNK
     Route: 065
  2. ISOTRETINOIN [Suspect]
     Dosage: 40 MG, QD
     Route: 065

REACTIONS (2)
  - IRRITABLE BOWEL SYNDROME [None]
  - PNEUMONIA [None]
